FAERS Safety Report 23297180 (Version 2)
Quarter: 2024Q1

REPORT INFORMATION
  Report Type: Spontaneous
  Country: PL (occurrence: PL)
  Receive Date: 20231214
  Receipt Date: 20240108
  Transmission Date: 20240410
  Serious: Yes (Hospitalization, Other)
  Sender: FDA-Public Use
  Company Number: None

PATIENT
  Age: 64 Year
  Sex: Male

DRUGS (20)
  1. OMEPRAZOLE [Interacting]
     Active Substance: OMEPRAZOLE
     Indication: Reflux gastritis
     Dosage: 15 MILLIGRAM
     Route: 065
  2. ACETAMINOPHEN\TRAMADOL HYDROCHLORIDE [Interacting]
     Active Substance: ACETAMINOPHEN\TRAMADOL HYDROCHLORIDE
     Indication: Arthralgia
     Dosage: TRAMADOL 75 MG/ PARACETAMOL 650 MG THRICE DAILY
     Route: 048
  3. METFORMIN [Interacting]
     Active Substance: METFORMIN HYDROCHLORIDE
     Indication: Type 2 diabetes mellitus
     Dosage: 1000 MG, PER DAY
  4. MIRTAZAPINE [Interacting]
     Active Substance: MIRTAZAPINE
     Indication: Depression
     Dosage: 15 MILLIGRAM
     Route: 065
  5. MIRTAZAPINE [Interacting]
     Active Substance: MIRTAZAPINE
     Indication: Insomnia
  6. METFORMIN [Interacting]
     Active Substance: METFORMIN HYDROCHLORIDE
     Indication: Type 2 diabetes mellitus
     Dosage: 1000 MILLIGRAM, QID
     Route: 048
  7. DEXKETOPROFEN [Suspect]
     Active Substance: DEXKETOPROFEN
     Indication: Arthralgia
     Dosage: 50 MG, 3X PER DAY
     Route: 048
  8. PREGABALIN [Suspect]
     Active Substance: PREGABALIN
     Indication: Arthralgia
     Dosage: 75 MG, 2X PER DAY
  9. SERTRALINE [Interacting]
     Active Substance: SERTRALINE HYDROCHLORIDE
     Indication: Insomnia
     Dosage: 50 MG IN THE MORNING
     Route: 048
  10. SERTRALINE [Interacting]
     Active Substance: SERTRALINE HYDROCHLORIDE
     Indication: Depression
  11. DAPAGLIFLOZIN [Interacting]
     Active Substance: DAPAGLIFLOZIN
     Indication: Type 2 diabetes mellitus
     Dosage: 10 MG, PER DAY
  12. OXYCODONE [Suspect]
     Active Substance: OXYCODONE
     Indication: Arthralgia
     Dosage: 20 MILLIGRAM, DAILY (20 MG PER DAY (TITRATED DOSE))
     Route: 042
  13. CIPROFLOXACIN [Interacting]
     Active Substance: CIPROFLOXACIN
     Indication: Type 2 diabetes mellitus
     Dosage: 500 MG, 2X PER DAY
     Route: 048
  14. CIPROFLOXACIN [Interacting]
     Active Substance: CIPROFLOXACIN
     Indication: Urinary tract infection
     Dosage: 500 MILLIGRAM, BID
     Route: 048
  15. PREGABALIN [Suspect]
     Active Substance: PREGABALIN
     Indication: Insomnia
     Dosage: 150 MILLIGRAM DAILY;
     Route: 048
  16. METAMIZOLE [Suspect]
     Active Substance: METAMIZOLE
     Indication: Arthralgia
     Dosage: 1000 MG, 3X PER DAY
     Route: 048
  17. OMEPRAZOLE [Interacting]
     Active Substance: OMEPRAZOLE
     Indication: Duodenal ulcer
     Dosage: 40 MG, PER DAY
     Route: 048
  18. PANTOPRAZOLE [Concomitant]
     Active Substance: PANTOPRAZOLE
     Indication: Reflux gastritis
     Dosage: UNK
     Route: 065
  19. PANTOPRAZOLE [Concomitant]
     Active Substance: PANTOPRAZOLE
     Dosage: UNK
     Route: 065
  20. PANTOPRAZOLE [Concomitant]
     Active Substance: PANTOPRAZOLE
     Dosage: UNK
     Route: 065

REACTIONS (4)
  - Sedation [Recovered/Resolved]
  - Arthralgia [Recovered/Resolved]
  - Labelled drug-drug interaction issue [Unknown]
  - Overdose [Recovered/Resolved]
